FAERS Safety Report 13855711 (Version 1)
Quarter: 2017Q3

REPORT INFORMATION
  Report Type: Spontaneous
  Country: US (occurrence: US)
  Receive Date: 20170810
  Receipt Date: 20170810
  Transmission Date: 20171127
  Serious: No
  Sender: FDA-Public Use
  Company Number: US-VIFOR (INTERNATIONAL) INC.-VIT-2017-07719

PATIENT
  Sex: Male

DRUGS (16)
  1. DIGOXIN. [Concomitant]
     Active Substance: DIGOXIN
  2. ASCORBIC ACID. [Concomitant]
     Active Substance: ASCORBIC ACID
  3. VELTASSA [Suspect]
     Active Substance: PATIROMER
     Indication: HYPERKALAEMIA
     Route: 048
  4. MELATONIN [Concomitant]
     Active Substance: MELATONIN
  5. IRON [Concomitant]
     Active Substance: IRON
  6. LOSARTAN. [Concomitant]
     Active Substance: LOSARTAN
  7. OMEGA 3 [Concomitant]
     Active Substance: OMEGA-3 FATTY ACIDS
  8. SODIUM BICARBONATE. [Concomitant]
     Active Substance: SODIUM BICARBONATE
  9. LUTEIN [Concomitant]
     Active Substance: LUTEIN
  10. COLECALCIFEROL [Concomitant]
     Active Substance: CHOLECALCIFEROL
  11. ATORVASTATIN CALCIUM. [Concomitant]
     Active Substance: ATORVASTATIN CALCIUM
  12. PROTONIX [Concomitant]
     Active Substance: PANTOPRAZOLE SODIUM
  13. VITAMINS NOS [Concomitant]
     Active Substance: VITAMINS
  14. ACETYLSALICYLIC ACID [Concomitant]
     Active Substance: ASPIRIN
  15. CARVEDILOL. [Concomitant]
     Active Substance: CARVEDILOL
  16. POTASSIUM [Concomitant]
     Active Substance: POTASSIUM

REACTIONS (1)
  - Constipation [Recovered/Resolved]
